FAERS Safety Report 23545065 (Version 1)
Quarter: 2024Q1

REPORT INFORMATION
  Report Type: Spontaneous
  Country: US (occurrence: None)
  Receive Date: 20240219
  Receipt Date: 20240219
  Transmission Date: 20240410
  Serious: No
  Sender: FDA-Public Use
  Company Number: None

PATIENT
  Age: 79 Year
  Sex: Female
  Weight: 48.99 kg

DRUGS (9)
  1. EVENITY [Suspect]
     Active Substance: ROMOSOZUMAB-AQQG
  2. ATENOLOL [Concomitant]
     Active Substance: ATENOLOL
  3. LISINOPRIL [Concomitant]
     Active Substance: LISINOPRIL
  4. ESTRADIOL [Concomitant]
     Active Substance: ESTRADIOL
  5. MDR MULTI -VITAMINS [Concomitant]
  6. VITAMIN D3 [Concomitant]
  7. VITAMIN B12 [Concomitant]
     Active Substance: CYANOCOBALAMIN
  8. GUNDRY MD PRODUCT -VITAL RED- [Concomitant]
  9. METABOLIC ADVANCED [Concomitant]

REACTIONS (3)
  - Somnolence [None]
  - Cerebellar stroke [None]
  - Cerebral artery stenosis [None]

NARRATIVE: CASE EVENT DATE: 20231009
